FAERS Safety Report 21859390 (Version 1)
Quarter: 2023Q1

REPORT INFORMATION
  Report Type: Report from Study
  Country: US (occurrence: US)
  Receive Date: 20230113
  Receipt Date: 20230113
  Transmission Date: 20230418
  Serious: Yes (Death, Hospitalization)
  Sender: FDA-Public Use
  Company Number: US-MYLANLABS-2023M1003546

PATIENT
  Age: 32 Year
  Sex: Female

DRUGS (14)
  1. ETOPOSIDE [Suspect]
     Active Substance: ETOPOSIDE
     Indication: Vulval cancer
     Dosage: UNK UNK, CYCLE
     Route: 065
  2. ETOPOSIDE [Suspect]
     Active Substance: ETOPOSIDE
     Indication: Ovarian germ cell endodermal sinus tumour
  3. CISPLATIN [Suspect]
     Active Substance: CISPLATIN
     Indication: Vulval cancer
     Dosage: UNK, CYCLE
     Route: 065
  4. CISPLATIN [Suspect]
     Active Substance: CISPLATIN
     Indication: Ovarian germ cell endodermal sinus tumour
  5. CARBOPLATIN [Suspect]
     Active Substance: CARBOPLATIN
     Indication: Vulval cancer
     Dosage: UNK; HIGH DOSE
     Route: 065
  6. CARBOPLATIN [Suspect]
     Active Substance: CARBOPLATIN
     Indication: Ovarian germ cell endodermal sinus tumour
  7. GEMCITABINE [Suspect]
     Active Substance: GEMCITABINE
     Indication: Vulval cancer
     Dosage: UNK
     Route: 065
  8. GEMCITABINE [Suspect]
     Active Substance: GEMCITABINE
     Indication: Ovarian germ cell endodermal sinus tumour
  9. PACLITAXEL [Suspect]
     Active Substance: PACLITAXEL
     Indication: Vulval cancer
     Dosage: UNK
     Route: 065
  10. PACLITAXEL [Suspect]
     Active Substance: PACLITAXEL
     Indication: Ovarian germ cell endodermal sinus tumour
  11. BLEOMYCIN [Suspect]
     Active Substance: BLEOMYCIN SULFATE
     Indication: Vulval cancer
     Dosage: UNK UNK, CYCLE
     Route: 065
  12. BLEOMYCIN [Suspect]
     Active Substance: BLEOMYCIN SULFATE
     Indication: Ovarian germ cell endodermal sinus tumour
  13. TAZEMETOSTAT [Suspect]
     Active Substance: TAZEMETOSTAT
     Indication: Vulval cancer
     Dosage: UNK
     Route: 065
  14. TAZEMETOSTAT [Suspect]
     Active Substance: TAZEMETOSTAT
     Indication: Ovarian germ cell endodermal sinus tumour

REACTIONS (1)
  - Drug ineffective [Fatal]
